FAERS Safety Report 4923219-X (Version None)
Quarter: 2006Q1

REPORT INFORMATION
  Report Type: 
  Country: None (occurrence: None)
  Receive Date: 20060127
  Receipt Date: 20051005
  Transmission Date: 20060701
  Serious: Yes (Other)
  Sender: FDA-Public Use
  Company Number: 2005140800

PATIENT
  Age: 59 Year
  Sex: Female
  Weight: 29.0302 kg

DRUGS (10)
  1. LYRICA [Suspect]
     Indication: NERVE INJURY
     Dosage: 150 MG (75 MG, 2 IN 1 D)
     Dates: start: 20051003, end: 20051004
  2. LYRICA [Suspect]
     Indication: PAIN
     Dosage: 150 MG (75 MG, 2 IN 1 D)
     Dates: start: 20051003, end: 20051004
  3. LOPRESSOR [Concomitant]
  4. TOPAMAX [Concomitant]
  5. PREMARIN [Concomitant]
  6. SYNTHROID [Concomitant]
  7. SKELAXIN [Concomitant]
  8. ZANAFLEX [Concomitant]
  9. FROVA (FROVATRIPTAN) [Concomitant]
  10. ZOMIG [Concomitant]

REACTIONS (7)
  - ASTHENIA [None]
  - DECREASED ACTIVITY [None]
  - FATIGUE [None]
  - HALLUCINATION [None]
  - ILLUSION [None]
  - PAIN IN EXTREMITY [None]
  - WEIGHT INCREASED [None]
